FAERS Safety Report 4707203-7 (Version None)
Quarter: 2005Q3

REPORT INFORMATION
  Report Type: 
  Country: None (occurrence: None)
  Receive Date: 20050706
  Receipt Date: 20050622
  Transmission Date: 20060218
  Serious: Yes (Hospitalization)
  Sender: FDA-Public Use
  Company Number: 200511613EU

PATIENT
  Age: 82 Year
  Sex: Female
  Weight: 62 kg

DRUGS (4)
  1. LASIX [Suspect]
     Indication: STAPHYLOCOCCAL INFECTION
     Route: 048
  2. ZOPICLONE [Suspect]
     Route: 048
  3. VANCOMYCIN [Suspect]
     Indication: CATHETER RELATED INFECTION
     Route: 042
     Dates: start: 20050501
  4. FLECAINIDE ACETATE [Suspect]
     Route: 048

REACTIONS (1)
  - VESTIBULAR DISORDER [None]
